FAERS Safety Report 8276790-7 (Version None)
Quarter: 2012Q2

REPORT INFORMATION
  Report Type: 
  Country: None (occurrence: None)
  Receive Date: 20120409
  Receipt Date: 20120330
  Transmission Date: 20120825
  Serious: Yes (Hospitalization)
  Sender: FDA-Public Use
  Company Number: ACO_29961_2012

PATIENT
  Age: 46 Year
  Sex: Female

DRUGS (3)
  1. BOTOX (BOTULINUM TOXIN TYPE A) [Concomitant]
  2. VIVEO (TOLPERISONE HYDROCHORIDE) [Concomitant]
  3. FAMPYRA (DALFAMPRIDINE) TABLET, 10MG [Suspect]
     Indication: MULTIPLE SCLEROSIS
     Dosage: 10 MG, BID, ORAL
     Route: 048
     Dates: start: 20111024

REACTIONS (3)
  - PAIN IN EXTREMITY [None]
  - FEMUR FRACTURE [None]
  - FALL [None]
